FAERS Safety Report 23874574 (Version 1)
Quarter: 2024Q2

REPORT INFORMATION
  Report Type: Spontaneous
  Country: HK (occurrence: HK)
  Receive Date: 20240520
  Receipt Date: 20240520
  Transmission Date: 20240716
  Serious: Yes (Other)
  Sender: FDA-Public Use
  Company Number: HK-002147023-PHHY2019HK201277

PATIENT

DRUGS (1)
  1. VOLTAREN [Suspect]
     Active Substance: DICLOFENAC SODIUM
     Indication: Product used for unknown indication
     Dosage: 3 ML, UNK (3ML VOLTAREN IN 20ML NORMAL SALINE INJECTED WITHIN 2-3 MINUTES)
     Route: 040

REACTIONS (1)
  - Incorrect route of product administration [Unknown]
